FAERS Safety Report 19246534 (Version 1)
Quarter: 2021Q2

REPORT INFORMATION
  Report Type: Spontaneous
  Country: CA (occurrence: CA)
  Receive Date: 20210512
  Receipt Date: 20210512
  Transmission Date: 20210717
  Serious: Yes (Death, Other)
  Sender: FDA-Public Use
  Company Number: CA-ACCORD-224604

PATIENT
  Age: 11 Year
  Sex: Male

DRUGS (11)
  1. IRINOTECAN [Suspect]
     Active Substance: IRINOTECAN
     Dosage: SOLUTION INTRAVENOUS
     Route: 065
  2. TEMOZOLOMIDE. [Suspect]
     Active Substance: TEMOZOLOMIDE
     Route: 065
  3. METHADONE [Suspect]
     Active Substance: METHADONE HYDROCHLORIDE
     Indication: PAIN
     Route: 065
  4. GABAPENTIN. [Suspect]
     Active Substance: GABAPENTIN
     Indication: PAIN
     Route: 065
  5. HYDROMORPHONE [Suspect]
     Active Substance: HYDROMORPHONE
     Indication: PAIN
     Route: 065
  6. CANNABIDIOL [Suspect]
     Active Substance: CANNABIDIOL
     Indication: PAIN
     Route: 065
  7. DEXAMETHASONE. [Suspect]
     Active Substance: DEXAMETHASONE
     Indication: NEOPLASM PROGRESSION
     Route: 065
  8. DINUTUXIMAB [Suspect]
     Active Substance: DINUTUXIMAB
     Indication: METASTASES TO LIVER
     Route: 065
  9. LORAZEPAM. [Suspect]
     Active Substance: LORAZEPAM
     Indication: ANXIETY
     Route: 065
  10. LORBRENA [Suspect]
     Active Substance: LORLATINIB
     Dosage: 1 EVERY 1 DAYS
     Route: 048
  11. FAMOTIDINE. [Suspect]
     Active Substance: FAMOTIDINE
     Indication: GASTRIC DISORDER
     Route: 065

REACTIONS (11)
  - Thrombocytopenia [Fatal]
  - Leukocytosis [Fatal]
  - Anaemia [Fatal]
  - Neuroblastoma recurrent [Fatal]
  - Retro-orbital neoplasm [Fatal]
  - Pallor [Fatal]
  - Fatigue [Fatal]
  - Malignant cranial nerve neoplasm [Fatal]
  - Nerve compression [Fatal]
  - Metastases to liver [Fatal]
  - Metastases to spine [Fatal]
